FAERS Safety Report 8463516-7 (Version None)
Quarter: 2012Q2

REPORT INFORMATION
  Report Type: 
  Country: None (occurrence: None)
  Receive Date: 20120625
  Receipt Date: 20120619
  Transmission Date: 20120825
  Serious: Yes (Hospitalization, Other)
  Sender: FDA-Public Use
  Company Number: US-PFIZER INC-2012131059

PATIENT
  Sex: Female
  Weight: 68.027 kg

DRUGS (7)
  1. ACETAMINOPHEN [Concomitant]
     Indication: OSTEOARTHRITIS
  2. ADVAIR DISKUS 100/50 [Suspect]
     Indication: ASTHMA
     Dosage: UNK
     Dates: end: 20120101
  3. ACETAMINOPHEN [Concomitant]
     Indication: ARTHRALGIA
     Dosage: 650 MG, 2X/DAY
  4. LEVOXYL [Suspect]
     Indication: THYROID DISORDER
     Dosage: 100 UG, 1X/DAY
     Route: 048
     Dates: start: 20100101
  5. SINGULAIR [Suspect]
     Indication: ASTHMA
     Dosage: UNK
     Dates: end: 20120101
  6. LEVOXYL [Suspect]
     Dosage: 88 UG, 1X/DAY
     Dates: start: 20120201
  7. METFORMIN [Concomitant]
     Indication: DIABETES MELLITUS
     Dosage: UNK

REACTIONS (8)
  - ATRIAL FIBRILLATION [None]
  - ASTHMA [None]
  - HYPERTENSION [None]
  - THYROID FUNCTION TEST ABNORMAL [None]
  - BRONCHITIS [None]
  - BLOOD CHOLESTEROL INCREASED [None]
  - LABORATORY TEST ABNORMAL [None]
  - DRUG INTOLERANCE [None]
